FAERS Safety Report 6093375-1 (Version None)
Quarter: 2009Q1

REPORT INFORMATION
  Report Type: 
  Country: None (occurrence: None)
  Receive Date: 20090226
  Receipt Date: 20090223
  Transmission Date: 20090719
  Serious: Yes (Disabling, Other)
  Sender: FDA-Public Use
  Company Number: US-ASTRAZENECA-2009UW01871

PATIENT
  Age: 781 Month
  Sex: Female

DRUGS (7)
  1. ARIMIDEX [Suspect]
     Indication: BREAST CANCER
     Route: 048
     Dates: start: 20060101
  2. ACIPHEX [Concomitant]
     Route: 048
  3. ZANTAC [Concomitant]
     Route: 048
  4. PREDNISONE [Concomitant]
     Route: 048
  5. CALCIUM [Concomitant]
     Route: 048
  6. MULTI-VITAMIN [Concomitant]
     Route: 048
  7. XANAX [Concomitant]

REACTIONS (3)
  - BLINDNESS [None]
  - OPTIC NEUROPATHY [None]
  - PAPILLOEDEMA [None]
